FAERS Safety Report 11090485 (Version 1)
Quarter: 2015Q2

REPORT INFORMATION
  Report Type: Spontaneous
  Country: US (occurrence: US)
  Receive Date: 20150505
  Receipt Date: 20150505
  Transmission Date: 20150821
  Serious: Yes (Hospitalization)
  Sender: FDA-Public Use
  Company Number: US-MYLANLABS-2015M1014970

PATIENT

DRUGS (2)
  1. KETAMINE [Suspect]
     Active Substance: KETAMINE
     Route: 045
  2. KETAMINE [Suspect]
     Active Substance: KETAMINE
     Dosage: 1-3 G/DAY 4-5 MONTHS PRIOR TO ADMISSION
     Route: 045

REACTIONS (4)
  - Therapeutic response unexpected [Unknown]
  - Drug abuse [Recovered/Resolved]
  - Delusion [Recovered/Resolved]
  - Memory impairment [Unknown]
